FAERS Safety Report 5078376-4 (Version None)
Quarter: 2006Q3

REPORT INFORMATION
  Report Type: 
  Country: None (occurrence: None)
  Receive Date: 20060811
  Receipt Date: 20060802
  Transmission Date: 20061208
  Serious: Yes (Death)
  Sender: FDA-Public Use
  Company Number: ES-GLAXOSMITHKLINE-B0433310A

PATIENT
  Sex: Male

DRUGS (1)
  1. SEROXAT [Suspect]
     Route: 065
     Dates: start: 20040101, end: 20040101

REACTIONS (1)
  - COMPLETED SUICIDE [None]
